FAERS Safety Report 12850800 (Version 1)
Quarter: 2016Q4

REPORT INFORMATION
  Report Type: Spontaneous
  Country: RU (occurrence: RU)
  Receive Date: 20161014
  Receipt Date: 20161014
  Transmission Date: 20170207
  Serious: Yes (Hospitalization, Other)
  Sender: FDA-Public Use
  Company Number: RU-ASTRAZENECA-2016SF06393

PATIENT
  Age: 60 Year
  Sex: Male
  Weight: 86 kg

DRUGS (5)
  1. BRILINTA [Suspect]
     Active Substance: TICAGRELOR
     Indication: ACUTE CORONARY SYNDROME
     Route: 048
     Dates: start: 201604
  2. BRILINTA [Suspect]
     Active Substance: TICAGRELOR
     Indication: STENT PLACEMENT
     Route: 048
     Dates: start: 201604
  3. LORISTA [Concomitant]
     Active Substance: LOSARTAN POTASSIUM
     Dosage: 25MG
  4. NEBIVOLOLE [Concomitant]
  5. ATORIS [Concomitant]
     Active Substance: ATORVASTATIN CALCIUM
     Dates: end: 201609

REACTIONS (3)
  - Gastric ulcer [Unknown]
  - Diabetes mellitus [Unknown]
  - Haematemesis [Unknown]

NARRATIVE: CASE EVENT DATE: 201607
